FAERS Safety Report 4367607-1 (Version None)
Quarter: 2004Q2

REPORT INFORMATION
  Report Type: 
  Country: None (occurrence: None)
  Receive Date: 20040601
  Receipt Date: 20030702
  Transmission Date: 20050107
  Serious: Yes (Disabling, Other)
  Sender: FDA-Public Use
  Company Number: US-MERCK-0307USA00235

PATIENT
  Age: 31 Year
  Sex: Male
  Weight: 93 kg

DRUGS (4)
  1. VICODIN [Concomitant]
     Route: 065
  2. CELEBREX [Concomitant]
     Route: 065
  3. VIOXX [Suspect]
     Indication: ROTATOR CUFF SYNDROME
     Route: 048
     Dates: start: 20010605, end: 20020601
  4. VIOXX [Suspect]
     Route: 048
     Dates: start: 20010605, end: 20020601

REACTIONS (15)
  - ANXIETY [None]
  - ARTHRALGIA [None]
  - BALANCE DISORDER [None]
  - BLINDNESS UNILATERAL [None]
  - EMOTIONAL DISTRESS [None]
  - HYPOAESTHESIA [None]
  - INJURY [None]
  - JOINT DISLOCATION [None]
  - KERATOCONJUNCTIVITIS SICCA [None]
  - MIGRAINE WITH AURA [None]
  - PAIN IN EXTREMITY [None]
  - PARAESTHESIA [None]
  - PLATELET COUNT INCREASED [None]
  - RETINAL HAEMORRHAGE [None]
  - RETINAL VEIN OCCLUSION [None]
